FAERS Safety Report 5474689-2 (Version None)
Quarter: 2007Q3

REPORT INFORMATION
  Report Type: 
  Country: None (occurrence: None)
  Receive Date: 20070928
  Receipt Date: 20070918
  Transmission Date: 20080115
  Serious: Yes (Other)
  Sender: FDA-Public Use
  Company Number: STI-2007-01491

PATIENT
  Age: 37 Year
  Sex: Male

DRUGS (2)
  1. 516A (SF 194/05) DUAC AKNE GEL (CLINDAMYCIN + BENZOYL PEROXIDE) (BENZO [Suspect]
     Indication: ACNE
     Dosage: 1 IN 1 DAYS TOPICAL
     Route: 061
     Dates: start: 20070705, end: 20070820
  2. AVONEX [Concomitant]

REACTIONS (1)
  - DIARRHOEA [None]
